FAERS Safety Report 14198523 (Version 1)
Quarter: 2017Q4

REPORT INFORMATION
  Report Type: Spontaneous
  Country: IT (occurrence: IT)
  Receive Date: 20171117
  Receipt Date: 20171117
  Transmission Date: 20180321
  Serious: Yes (Hospitalization)
  Sender: FDA-Public Use
  Company Number: IT-SUN PHARMACEUTICAL INDUSTRIES LTD-2016R1-111294

PATIENT
  Age: 50 Year
  Sex: Female

DRUGS (5)
  1. LITHIUM. [Suspect]
     Active Substance: LITHIUM
     Indication: BIPOLAR DISORDER
     Dosage: 2 DF, BID
     Route: 065
  2. DEPAKIN [Concomitant]
     Active Substance: VALPROATE SODIUM
     Indication: BIPOLAR DISORDER
     Dosage: 500 MG, QD
     Route: 065
  3. CONGESCOR [Concomitant]
     Active Substance: BISOPROLOL
     Dosage: 1 DF, DAILY
  4. TRIATEC [Concomitant]
     Active Substance: RAMIPRIL
     Dosage: 1 DF, DAILY
  5. RISPERDAL [Concomitant]
     Active Substance: RISPERIDONE
     Indication: BIPOLAR DISORDER
     Dosage: 1 VIAL EVERY 15 DAYS
     Route: 065

REACTIONS (6)
  - Electrocardiogram abnormal [Unknown]
  - Congestive cardiomyopathy [Unknown]
  - Hyperpyrexia [Unknown]
  - Toxicity to various agents [Recovering/Resolving]
  - Neurotoxicity [Recovering/Resolving]
  - Renal failure [Recovering/Resolving]
